FAERS Safety Report 7251928-9 (Version None)
Quarter: 2011Q1

REPORT INFORMATION
  Report Type: 
  Country: None (occurrence: None)
  Receive Date: 20110128
  Receipt Date: 20100421
  Transmission Date: 20110831
  Serious: No
  Sender: FDA-Public Use
  Company Number: US-ABBOTT-09P-163-0613773-00

PATIENT
  Sex: Female
  Weight: 97.156 kg

DRUGS (6)
  1. WELLBUTRIN [Concomitant]
     Indication: PRODUCT USED FOR UNKNOWN INDICATION
  2. LOBIC [Concomitant]
     Indication: BLOOD GLUCOSE ABNORMAL
  3. VICODIN [Concomitant]
     Indication: PAIN
  4. MOBIC [Concomitant]
     Indication: PAIN
  5. ALPRAZOLAM [Concomitant]
     Indication: PRODUCT USED FOR UNKNOWN INDICATION
  6. HUMIRA [Suspect]
     Indication: RHEUMATOID ARTHRITIS
     Route: 058
     Dates: start: 20090303

REACTIONS (11)
  - HYPERSENSITIVITY [None]
  - CYST [None]
  - SYNOVIAL CYST [None]
  - JOINT SWELLING [None]
  - SINUSITIS [None]
  - OEDEMA PERIPHERAL [None]
  - OEDEMA [None]
  - PAIN IN EXTREMITY [None]
  - RESPIRATORY TRACT CONGESTION [None]
  - HEADACHE [None]
  - INFLUENZA LIKE ILLNESS [None]
